FAERS Safety Report 6809390-3 (Version None)
Quarter: 2010Q2

REPORT INFORMATION
  Report Type: 
  Country: None (occurrence: None)
  Receive Date: 20100630
  Receipt Date: 20100524
  Transmission Date: 20101027
  Serious: Yes (Other)
  Sender: FDA-Public Use
  Company Number: US-SANOFI-AVENTIS-2010SA029727

PATIENT
  Age: 56 Year
  Sex: Female
  Weight: 72.6 kg

DRUGS (6)
  1. LOVENOX [Suspect]
     Indication: PULMONARY EMBOLISM
     Route: 058
     Dates: start: 20091117, end: 20100607
  2. ZOLOFT [Concomitant]
     Indication: DEPRESSION
  3. VERAPAMIL [Concomitant]
     Indication: TACHYCARDIA
  4. COLACE [Concomitant]
     Indication: CONSTIPATION
  5. ATIVAN [Concomitant]
     Indication: ANXIETY
     Dosage: 1MG TID PRN
  6. RISPERIDONE [Concomitant]

REACTIONS (8)
  - CONDITION AGGRAVATED [None]
  - CYST [None]
  - HEPATIC CYST [None]
  - HEPATIC ENZYME INCREASED [None]
  - INJECTION SITE NODULE [None]
  - MUSCLE SPASMS [None]
  - NAUSEA [None]
  - RIB FRACTURE [None]
